FAERS Safety Report 7393796 (Version 6)
Quarter: 2012Q4

REPORT INFORMATION
  Report Type: 
  Country: US (occurrence: US)
  Receive Date: 20100520
  Receipt Date: 20120905
  Transmission Date: 20130627
  Serious: No
  Sender: FDA-Public Use
  Company Number: US-BIOGENIDEC-2010BI015878

PATIENT
  Age: 34 None
  Sex: Female

DRUGS (1)
  1. TYSABRI [Suspect]
     Indication: MULTIPLE SCLEROSIS
     Route: 042
     Dates: start: 20091211

REACTIONS (33)
  - Back pain [Not Recovered/Not Resolved]
  - Neck pain [Not Recovered/Not Resolved]
  - Road traffic accident [Recovered/Resolved]
  - Pain in extremity [Not Recovered/Not Resolved]
  - Dysstasia [Not Recovered/Not Resolved]
  - Fall [Recovered/Resolved]
  - Arthritis [Not Recovered/Not Resolved]
  - Intervertebral disc protrusion [Not Recovered/Not Resolved]
  - Feeling abnormal [Recovered/Resolved]
  - Spinal disorder [Not Recovered/Not Resolved]
  - Mobility decreased [Not Recovered/Not Resolved]
  - Exercise tolerance decreased [Not Recovered/Not Resolved]
  - Nerve injury [Unknown]
  - Dislocation of vertebra [Unknown]
  - Gait disturbance [Not Recovered/Not Resolved]
  - Speech disorder [Not Recovered/Not Resolved]
  - Aphasia [Not Recovered/Not Resolved]
  - Hypoaesthesia [Not Recovered/Not Resolved]
  - Sciatica [Not Recovered/Not Resolved]
  - Intervertebral disc displacement [Not Recovered/Not Resolved]
  - Psychomotor hyperactivity [Recovered/Resolved]
  - Memory impairment [Not Recovered/Not Resolved]
  - Cognitive disorder [Not Recovered/Not Resolved]
  - Balance disorder [Not Recovered/Not Resolved]
  - Pain [Not Recovered/Not Resolved]
  - Toothache [Unknown]
  - Muscle spasticity [Not Recovered/Not Resolved]
  - Restlessness [Unknown]
  - Tooth disorder [Unknown]
  - Weight abnormal [Unknown]
  - Headache [Not Recovered/Not Resolved]
  - Multiple sclerosis relapse [Unknown]
  - Drug effect decreased [Unknown]
